FAERS Safety Report 18071228 (Version 1)
Quarter: 2020Q3

REPORT INFORMATION
  Report Type: Spontaneous
  Country: US (occurrence: US)
  Receive Date: 20200725
  Receipt Date: 20200725
  Transmission Date: 20201103
  Serious: Yes (Other)
  Sender: FDA-Public Use
  Company Number: None

PATIENT
  Age: 48 Year
  Sex: Male
  Weight: 124.2 kg

DRUGS (5)
  1. COENZYME Q10 [Concomitant]
     Active Substance: DIETARY SUPPLEMENT\UBIDECARENONE
  2. RENADYL PROBIOTIC [Concomitant]
  3. BLOOD PRESSURE MEDICATIONS [Concomitant]
     Active Substance: UNSPECIFIED INGREDIENT
  4. KEEP CLEAN HAND SANITIZER 3.78L 01 [Suspect]
     Active Substance: ALCOHOL
     Indication: INFECTION PROPHYLAXIS
     Dosage: ?          QUANTITY:16.9 OUNCE(S);?
     Dates: start: 20200601, end: 20200725
  5. PRORENAL+D RENAL MULTIVITAMIN [Concomitant]

REACTIONS (6)
  - Renal impairment [None]
  - Nausea [None]
  - Product formulation issue [None]
  - Recalled product administered [None]
  - Headache [None]
  - Toxicity to various agents [None]

NARRATIVE: CASE EVENT DATE: 20200725
